FAERS Safety Report 6101002-X (Version None)
Quarter: 2009Q1

REPORT INFORMATION
  Report Type: 
  Country: None (occurrence: None)
  Receive Date: 20090220
  Receipt Date: 20090209
  Transmission Date: 20090719
  Serious: Yes (Hospitalization)
  Sender: FDA-Public Use
  Company Number: CHNY2009JP00919

PATIENT
  Age: 54 Year
  Sex: Female
  Weight: 47 kg

DRUGS (1)
  1. NICOTINELL US (NCH) (NICOTINE) TRANS-THERAPEUTIC-SYSTEM [Suspect]
     Indication: SMOKING CESSATION THERAPY
     Dosage: 14 MG, QD, TRANSDERMAL
     Route: 062
     Dates: start: 20090114, end: 20090114

REACTIONS (7)
  - FEELING ABNORMAL [None]
  - FEELING COLD [None]
  - HYPOAESTHESIA [None]
  - MOBILITY DECREASED [None]
  - NICOTINE DEPENDENCE [None]
  - VERTIGO [None]
  - VOMITING [None]
